FAERS Safety Report 26140890 (Version 1)
Quarter: 2025Q4

REPORT INFORMATION
  Report Type: Report from Study
  Country: US (occurrence: US)
  Receive Date: 20251210
  Receipt Date: 20251210
  Transmission Date: 20260118
  Serious: Yes (Other)
  Sender: ROCHE
  Company Number: US-ROCHE-10000452776

PATIENT
  Age: 70 Year
  Sex: Female

DRUGS (5)
  1. ACTEMRA [Suspect]
     Active Substance: TOCILIZUMAB
     Indication: Rheumatoid arthritis
     Dosage: 4MG/KG EVERY 4 WEEK
     Route: 042
  2. XOLAIR [Suspect]
     Active Substance: OMALIZUMAB
     Indication: Product used for unknown indication
  3. PREDNISONE [Concomitant]
     Active Substance: PREDNISONE
  4. ENBREL [Concomitant]
     Active Substance: ETANERCEPT
  5. METHOTREXATE [Concomitant]
     Active Substance: METHOTREXATE
     Route: 058

REACTIONS (12)
  - Panniculitis [Recovered/Resolved]
  - Night sweats [Unknown]
  - Platelet count decreased [Recovered/Resolved]
  - Osteoarthritis [Unknown]
  - Dizziness [Unknown]
  - Lymphadenopathy [Unknown]
  - Dyspnoea [Unknown]
  - Constipation [Unknown]
  - Hypertension [Unknown]
  - Blood cholesterol increased [Unknown]
  - Haematochezia [Unknown]
  - Faeces discoloured [Unknown]
